FAERS Safety Report 4350082-0 (Version None)
Quarter: 2004Q2

REPORT INFORMATION
  Report Type: 
  Country: None (occurrence: None)
  Receive Date: 20040426
  Receipt Date: 20040409
  Transmission Date: 20050107
  Serious: Yes (Hospitalization)
  Sender: FDA-Public Use
  Company Number: T03-USA-02948-01

PATIENT
  Age: 87 Year
  Sex: Female

DRUGS (8)
  1. MEMANTINE (OPEN LABEL, PHASE B) (MEMANTINE) [Suspect]
     Indication: DEMENTIA ALZHEIMER'S TYPE
     Dosage: 20 MG QD PO
     Route: 048
  2. MEMANTINE HCL [Suspect]
     Indication: DEMENTIA ALZHEIMER'S TYPE
     Dosage: 2 TABLETS BID PO
     Route: 048
     Dates: start: 20030604
  3. RAMIPRIL [Concomitant]
  4. CLONIDINE HCL (CLONIDINE HYDROCHLORIDE) [Concomitant]
  5. TRIAMCINOLONE [Concomitant]
  6. AMOXICILLIN [Concomitant]
  7. SODIUM CHLORIDE 0.9% [Concomitant]
  8. SENOOSIDES (SENNOSIDE A) [Concomitant]

REACTIONS (3)
  - CHEST PAIN [None]
  - HYPERHIDROSIS [None]
  - SINUS BRADYCARDIA [None]
